FAERS Safety Report 9009544 (Version 1)
Quarter: 2013Q1

REPORT INFORMATION
  Report Type: Spontaneous
  Country: US (occurrence: US)
  Receive Date: 20130112
  Receipt Date: 20130112
  Transmission Date: 20140127
  Serious: Yes (Hospitalization, Other)
  Sender: FDA-Public Use
  Company Number: US-009507513-1301USA000976

PATIENT
  Sex: Male

DRUGS (3)
  1. MONTELUKAST SODIUM [Suspect]
     Dosage: 10 MG, QD
     Route: 048
  2. STERANE [Suspect]
     Route: 048
  3. NIFEDIPINE [Concomitant]

REACTIONS (3)
  - Allergic granulomatous angiitis [Unknown]
  - Vasculitic rash [Unknown]
  - Eosinophilia [Unknown]
